FAERS Safety Report 6849777-6 (Version None)
Quarter: 2010Q3

REPORT INFORMATION
  Report Type: 
  Country: None (occurrence: None)
  Receive Date: 20100716
  Receipt Date: 20071003
  Transmission Date: 20110219
  Serious: No
  Sender: FDA-Public Use
  Company Number: US-PFIZER INC-2007084600

PATIENT
  Age: 20 Year
  Sex: Female

DRUGS (5)
  1. CHANTIX [Suspect]
     Indication: SMOKING CESSATION THERAPY
     Dates: start: 20070921
  2. ORAL CONTRACEPTIVE NOS [Concomitant]
  3. KLONOPIN [Concomitant]
  4. ADDERALL 10 [Concomitant]
  5. PROTONIX [Concomitant]

REACTIONS (3)
  - NIGHTMARE [None]
  - SLEEP DISORDER [None]
  - STUPOR [None]
